FAERS Safety Report 10456902 (Version 2)
Quarter: 2014Q4

REPORT INFORMATION
  Report Type: Spontaneous
  Country: US (occurrence: US)
  Receive Date: 20140916
  Receipt Date: 20141001
  Transmission Date: 20150528
  Serious: Yes (Other)
  Sender: FDA-Public Use
  Company Number: US-BAXTER-2014BAX055857

PATIENT
  Age: 45 Year
  Sex: Male

DRUGS (1)
  1. RIXUBIS [Suspect]
     Active Substance: COAGULATION FACTOR IX RECOMBINANT HUMAN
     Indication: FACTOR IX DEFICIENCY
     Dosage: 11,000 (UNITS NOT REPORTED)
     Route: 058
     Dates: start: 201401

REACTIONS (3)
  - Muscle haemorrhage [Recovered/Resolved]
  - Back injury [Unknown]
  - Coagulation factor IX level decreased [Unknown]

NARRATIVE: CASE EVENT DATE: 201404
